FAERS Safety Report 9400645 (Version 1)
Quarter: 2013Q3

REPORT INFORMATION
  Report Type: Spontaneous
  Country: US (occurrence: US)
  Receive Date: 20130715
  Receipt Date: 20130715
  Transmission Date: 20140515
  Serious: Yes (Death, Other)
  Sender: FDA-Public Use
  Company Number: US-ELI_LILLY_AND_COMPANY-US201307004228

PATIENT
  Sex: 0

DRUGS (3)
  1. GEMCITABINE HYDROCHLORIDE [Suspect]
     Indication: BLADDER CANCER
     Dosage: 800 MG/M2, OTHER
  2. PACLITAXEL [Suspect]
     Dosage: 260 MG/M2, OTHER
  3. CARBOPLATIN [Suspect]
     Dosage: 5 UNK, UNK

REACTIONS (5)
  - Haemorrhage intracranial [Fatal]
  - Thrombocytopenia [Unknown]
  - Febrile neutropenia [Unknown]
  - Respiratory failure [Unknown]
  - Renal failure [Unknown]
